FAERS Safety Report 19919588 (Version 1)
Quarter: 2021Q4

REPORT INFORMATION
  Report Type: Other
  Country: US (occurrence: US)
  Receive Date: 20211005
  Receipt Date: 20211005
  Transmission Date: 20220303
  Serious: Yes (Hospitalization)
  Sender: FDA-Public Use
  Company Number: US-COVIS PHARMA GMBH-2021COV23713

PATIENT
  Age: 34 Year
  Sex: Female
  Weight: 126.21 kg

DRUGS (1)
  1. MAKENA [Suspect]
     Active Substance: HYDROXYPROGESTERONE CAPROATE
     Indication: Premature delivery
     Dosage: 275MG/1.1ML
     Route: 058
     Dates: start: 20210722, end: 20210722

REACTIONS (1)
  - Shortened cervix [Recovered/Resolved]

NARRATIVE: CASE EVENT DATE: 20210726
